FAERS Safety Report 7398862 (Version 5)
Quarter: 2014Q1

REPORT INFORMATION
  Report Type: Spontaneous
  Country: US (occurrence: US)
  Receive Date: 20100525
  Receipt Date: 20140313
  Transmission Date: 20141002
  Serious: Yes (Hospitalization, Other)
  Sender: FDA-Public Use
  Company Number: US-BAYER-201022995NA

PATIENT
  Age: 19 Year
  Sex: Female
  Weight: 72.56 kg

DRUGS (7)
  1. YASMIN [Suspect]
     Indication: CONTRACEPTION
     Dosage: 1 DF, QD
     Route: 048
     Dates: start: 200601, end: 2009
  2. AMOXIL [Concomitant]
  3. CLINDAMYCIN [Concomitant]
  4. PREDNISONE [Concomitant]
  5. VITAMIN C [Concomitant]
     Dosage: UNK
     Dates: start: 2007, end: 2009
  6. ASPIRIN [Concomitant]
  7. LANSOPRAZOLE [Concomitant]

REACTIONS (8)
  - Cholecystitis chronic [None]
  - Gallbladder injury [Unknown]
  - Bile acid malabsorption [None]
  - Diarrhoea [None]
  - Abdominal pain lower [None]
  - Abdominal pain upper [None]
  - Chest pain [None]
  - Dyspnoea [None]
